FAERS Safety Report 10359706 (Version 2)
Quarter: 2014Q3

REPORT INFORMATION
  Report Type: Spontaneous
  Country: CH (occurrence: CH)
  Receive Date: 20140804
  Receipt Date: 20140808
  Transmission Date: 20150326
  Serious: Yes (Hospitalization)
  Sender: FDA-Public Use
  Company Number: CH-PFIZER INC-2014213118

PATIENT
  Age: 76 Year
  Sex: Male
  Weight: 84.3 kg

DRUGS (25)
  1. CLARITHROMYCIN. [Interacting]
     Active Substance: CLARITHROMYCIN
     Indication: BRONCHOPNEUMONIA
     Dosage: 1 DF, UNK
     Route: 048
     Dates: start: 20140704, end: 20140704
  2. LISINOPRIL. [Concomitant]
     Active Substance: LISINOPRIL
     Indication: CARDIAC FAILURE
     Dosage: 20 MG, 1X/DAY
     Route: 048
     Dates: start: 20140512, end: 20140704
  3. ARIXTRA [Concomitant]
     Active Substance: FONDAPARINUX SODIUM
     Indication: THROMBOSIS PROPHYLAXIS
     Dosage: 2.5 MG, 1X/DAY
     Route: 058
     Dates: start: 20140702, end: 20140709
  4. TEMGESIC ^ESSEX PHARMA^ [Concomitant]
     Indication: BACK PAIN
     Dosage: 0.1 MG, 3X/DAY
     Route: 058
     Dates: start: 20140704
  5. ASPIRIN ^BAYER^ [Concomitant]
     Active Substance: ASPIRIN
     Indication: MYOCARDIAL INFARCTION
     Dosage: 100 MG, 1X/DAY
     Route: 048
     Dates: start: 20140428, end: 20140709
  6. AMLODIPINE [Concomitant]
     Active Substance: AMLODIPINE BESYLATE
     Indication: ESSENTIAL HYPERTENSION
     Dosage: 5 MG, 1X/DAY
     Route: 048
     Dates: start: 20140526, end: 20140704
  7. PRONTOLAX [Concomitant]
     Active Substance: BISACODYL
     Indication: CONSTIPATION
     Dosage: 5 MG, 1X/DAY
     Route: 048
     Dates: start: 20140523, end: 20140704
  8. PREDNISONE. [Concomitant]
     Active Substance: PREDNISONE
     Indication: PULMONARY FIBROSIS
     Dosage: 20 MG, 1X/DAY
     Route: 048
     Dates: start: 20140624
  9. NOVORAPID [Concomitant]
     Active Substance: INSULIN ASPART
     Indication: DIABETES MELLITUS
     Dosage: DOSAGE ACCORDING TO GLYCEMIA, IN RESERVE
     Route: 058
     Dates: start: 20140503
  10. CLARITHROMYCIN. [Interacting]
     Active Substance: CLARITHROMYCIN
     Indication: BRONCHOPNEUMONIA
     Dosage: 500 MG, 2X/DAY
     Route: 041
     Dates: start: 20140704, end: 20140708
  11. LASIX [Suspect]
     Active Substance: FUROSEMIDE
     Dosage: VARIABLE DOSES BETWEEN 20 MG 1X/DAY AND 60 MG 1X/DAY
     Route: 041
     Dates: start: 20140630, end: 20140708
  12. SOLU-MEDROL [Concomitant]
     Active Substance: METHYLPREDNISOLONE SODIUM SUCCINATE
     Indication: PULMONARY FIBROSIS
     Dosage: 80 MG, 1X/DAY
     Route: 041
     Dates: start: 20140704, end: 20140709
  13. PRAVASTATIN [Concomitant]
     Active Substance: PRAVASTATIN\PRAVASTATIN SODIUM
     Indication: HYPERCHOLESTEROLAEMIA
     Dosage: 20 MG, 1X/DAY
     Route: 048
     Dates: start: 20140406, end: 20140704
  14. DILZEM [Concomitant]
     Active Substance: DILTIAZEM
     Indication: ATRIAL FIBRILLATION
     Dosage: 30 MG, 3X/DAY
     Route: 048
     Dates: start: 20140711
  15. TAZOBAC [Interacting]
     Active Substance: PIPERACILLIN SODIUM\TAZOBACTAM SODIUM
     Dosage: 4.5 G, 3X/DAY
     Route: 041
     Dates: start: 20140704, end: 20140709
  16. ISOPHANE INSULIN [Concomitant]
     Active Substance: INSULIN NOS
     Indication: DIABETES MELLITUS
     Dosage: VARIABLE DOSES BETWEEN 14 IU AND 20 IU BETWEEN 21JUN2014 AND 10JUL2014
     Route: 058
     Dates: start: 20140621
  17. POTASSIUM [Concomitant]
     Active Substance: POTASSIUM
     Indication: HYPOKALAEMIA
     Dosage: 30 MMOL, 3X/DAY
     Route: 048
     Dates: start: 20140703, end: 20140704
  18. TORASEMIDE [Concomitant]
     Active Substance: TORSEMIDE
     Indication: CARDIAC FAILURE
     Dosage: 5 MG, 1X/DAY
     Route: 048
     Dates: start: 20140629
  19. NEXIUM [Concomitant]
     Active Substance: ESOMEPRAZOLE MAGNESIUM
     Indication: DYSPEPSIA
     Dosage: 20 MG, 1X/DAY
     Route: 048
     Dates: start: 20140516, end: 20140703
  20. TAZOBAC [Suspect]
     Active Substance: PIPERACILLIN SODIUM\TAZOBACTAM SODIUM
     Indication: BRONCHOPNEUMONIA
     Dosage: 4.5 G, 3X/DAY
     Route: 041
     Dates: start: 20140622, end: 20140628
  21. PERFALGAN [Suspect]
     Active Substance: ACETAMINOPHEN
     Indication: PYREXIA
     Dosage: 1 G, 3X/DAY (IN RESERVE), RECEIVED 1 DOSE ON 03JUL2014 AND ONE DOSE ON 04JUL2014.
     Route: 041
     Dates: start: 20140703, end: 20140710
  22. NOVALGIN [Concomitant]
     Active Substance: METAMIZOLE SODIUM
     Indication: PYREXIA
     Dosage: 500 MG, 3X/DAY (IN RESERVE), RECEIVED ONE DOSE ON 04JUL2014
     Route: 041
     Dates: start: 20140704, end: 20140710
  23. GABAPENTIN. [Concomitant]
     Active Substance: GABAPENTIN
     Indication: BONE PAIN
     Dosage: 300 MG, 3X/DAY
     Route: 048
     Dates: start: 20140506
  24. BELOC [Concomitant]
     Active Substance: METOPROLOL TARTRATE
     Indication: CARDIAC FAILURE
     Dosage: 50 MG, 1X/DAY
     Route: 048
     Dates: start: 20140528, end: 20140704
  25. NITRODERM [Concomitant]
     Active Substance: NITROGLYCERIN
     Indication: CARDIAC FAILURE
     Dosage: 5 MG, 1X/DAY
     Route: 062
     Dates: start: 20140429, end: 20140704

REACTIONS (2)
  - Hepatic enzyme increased [Not Recovered/Not Resolved]
  - Drug interaction [Not Recovered/Not Resolved]

NARRATIVE: CASE EVENT DATE: 20140708
